FAERS Safety Report 24271518 (Version 1)
Quarter: 2024Q3

REPORT INFORMATION
  Report Type: Spontaneous
  Country: US (occurrence: US)
  Receive Date: 20240901
  Receipt Date: 20240901
  Transmission Date: 20241016
  Serious: No
  Sender: ABBVIE
  Company Number: US-ABBVIE-5894259

PATIENT

DRUGS (1)
  1. RISANKIZUMAB [Suspect]
     Active Substance: RISANKIZUMAB
     Indication: Psoriasis
     Dosage: SKYRIZI 150MG EVERY 12 WEEKS ?RECEIVED 3 DOSES
     Route: 058

REACTIONS (1)
  - Crohn^s disease [Unknown]
